FAERS Safety Report 18596654 (Version 3)
Quarter: 2020Q4

REPORT INFORMATION
  Report Type: Spontaneous
  Country: US (occurrence: US)
  Receive Date: 20201209
  Receipt Date: 20201214
  Transmission Date: 20210114
  Serious: No
  Sender: FDA-Public Use
  Company Number: US-PFIZER INC-2020484425

PATIENT

DRUGS (1)
  1. RUXIENCE [Suspect]
     Active Substance: RITUXIMAB-PVVR
     Dosage: 862.5 MG (100MG/10 ML SOLN (4 VIALS -ONE WASTED 3.75ML)

REACTIONS (3)
  - Blood pressure increased [Unknown]
  - Hypotension [Unknown]
  - Product dose omission issue [Unknown]
